FAERS Safety Report 8448423-8 (Version None)
Quarter: 2012Q2

REPORT INFORMATION
  Report Type: 
  Country: None (occurrence: None)
  Receive Date: 20120619
  Receipt Date: 20120607
  Transmission Date: 20120825
  Serious: Yes (Other)
  Sender: FDA-Public Use
  Company Number: US-VERTEX PHARMACEUTICALS INC.-AE-2012-006503

PATIENT
  Age: 49 Year
  Sex: Female

DRUGS (5)
  1. ZOLOFT [Concomitant]
  2. ZYRTEC [Concomitant]
  3. RIBAVIRIN [Concomitant]
     Indication: HEPATITIS C
     Dates: start: 20120123, end: 20120223
  4. PEGINTERFERON ALFA-2A [Concomitant]
     Indication: HEPATITIS C
     Dates: start: 20120123, end: 20120223
  5. INCIVEK [Suspect]
     Indication: HEPATITIS C
     Route: 048
     Dates: start: 20120123, end: 20120216

REACTIONS (4)
  - CELLULITIS STAPHYLOCOCCAL [None]
  - NEURODERMATITIS [None]
  - PRURITUS [None]
  - RASH [None]
